FAERS Safety Report 8334032-8 (Version None)
Quarter: 2012Q2

REPORT INFORMATION
  Report Type: 
  Country: None (occurrence: None)
  Receive Date: 20120503
  Receipt Date: 20120424
  Transmission Date: 20120825
  Serious: Yes (Hospitalization)
  Sender: FDA-Public Use
  Company Number: ES-ASTRAZENECA-2012SE26971

PATIENT
  Age: 83 Year
  Sex: Male

DRUGS (10)
  1. ALLOPURINOL [Concomitant]
  2. PREDNISONE [Concomitant]
  3. VITAMIN D [Concomitant]
  4. MANIDIPINE [Concomitant]
  5. CALCIUM [Concomitant]
  6. TORSEMIDE [Concomitant]
  7. BISOPROLOL FUMARATE [Concomitant]
  8. OMEPRAZOLE [Suspect]
     Dosage: DAILY
     Route: 048
     Dates: start: 20090101
  9. LEVOTHYROXINE SODIUM [Concomitant]
  10. WARFARIN SODIUM [Concomitant]

REACTIONS (5)
  - HYPOMAGNESAEMIA [None]
  - MUSCULAR WEAKNESS [None]
  - DISORIENTATION [None]
  - ASTHENIA [None]
  - VOMITING [None]
